FAERS Safety Report 18480105 (Version 1)
Quarter: 2020Q4

REPORT INFORMATION
  Report Type: Spontaneous
  Country: US (occurrence: US)
  Receive Date: 20201109
  Receipt Date: 20201109
  Transmission Date: 20210114
  Serious: Yes (Hospitalization)
  Sender: FDA-Public Use
  Company Number: None

PATIENT
  Age: 22 Year
  Sex: Female

DRUGS (1)
  1. TADALAFIL 20MG TAB [Suspect]
     Active Substance: TADALAFIL
     Indication: PULMONARY ARTERIAL HYPERTENSION
     Dosage: ?          OTHER DOSE:1/2 TAB;?
     Route: 048
     Dates: start: 20190305

REACTIONS (2)
  - Sinusitis [None]
  - Therapy interrupted [None]

NARRATIVE: CASE EVENT DATE: 20201013
